FAERS Safety Report 4727765-3 (Version None)
Quarter: 2005Q3

REPORT INFORMATION
  Report Type: 
  Country: None (occurrence: None)
  Receive Date: 20050728
  Receipt Date: 20050725
  Transmission Date: 20060218
  Serious: Yes (Disabling)
  Sender: FDA-Public Use
  Company Number: VE-MERCK-0507VEN00002

PATIENT
  Age: 67 Year
  Sex: Male

DRUGS (5)
  1. SINGULAIR [Suspect]
     Indication: ASTHMA
     Route: 048
     Dates: end: 20050722
  2. GLIMEPIRIDE [Concomitant]
     Indication: DIABETES MELLITUS NON-INSULIN-DEPENDENT
     Route: 065
  3. METOPROLOL SUCCINATE [Concomitant]
     Indication: HYPERTENSION
     Route: 065
  4. METFORMIN HYDROCHLORIDE [Concomitant]
     Indication: DIABETES MELLITUS NON-INSULIN-DEPENDENT
     Route: 065
  5. BUDESONIDE [Concomitant]
     Indication: ASTHMA
     Route: 065

REACTIONS (3)
  - PRESCRIBED OVERDOSE [None]
  - TACHYCARDIA [None]
  - VENTRICULAR ARRHYTHMIA [None]
